FAERS Safety Report 22155693 (Version 1)
Quarter: 2023Q1

REPORT INFORMATION
  Report Type: Spontaneous
  Country: US (occurrence: US)
  Receive Date: 20230330
  Receipt Date: 20230330
  Transmission Date: 20230417
  Serious: Yes (Death, Hospitalization, Other)
  Sender: FDA-Public Use
  Company Number: US-SUN PHARMACEUTICAL INDUSTRIES LTD-2023R1-382806

PATIENT
  Age: 35 Year
  Sex: Female

DRUGS (6)
  1. KETOROLAC [Suspect]
     Active Substance: KETOROLAC TROMETHAMINE
     Indication: Hangover
     Dosage: UNK
     Route: 042
  2. KETOROLAC [Suspect]
     Active Substance: KETOROLAC TROMETHAMINE
     Indication: Alcohol poisoning
  3. ONDANSETRON [Suspect]
     Active Substance: ONDANSETRON
     Indication: Hangover
     Dosage: UNK
     Route: 042
  4. ONDANSETRON [Suspect]
     Active Substance: ONDANSETRON
     Indication: Alcohol poisoning
  5. VITAMINS [Suspect]
     Active Substance: VITAMINS
     Indication: Hangover
     Dosage: UNK
     Route: 042
  6. VITAMINS [Suspect]
     Active Substance: VITAMINS
     Indication: Alcohol poisoning

REACTIONS (11)
  - Encephalopathy [Fatal]
  - Long QT syndrome [Fatal]
  - Ventricular tachycardia [Fatal]
  - Hypokalaemia [Fatal]
  - Hypomagnesaemia [Fatal]
  - Brain injury [Fatal]
  - Areflexia [Fatal]
  - Cardiac arrest [Fatal]
  - Unresponsive to stimuli [Fatal]
  - Ventricular fibrillation [Fatal]
  - Left ventricular dysfunction [Fatal]
